FAERS Safety Report 18313067 (Version 1)
Quarter: 2020Q3

REPORT INFORMATION
  Report Type: Spontaneous
  Country: US (occurrence: US)
  Receive Date: 20200925
  Receipt Date: 20200925
  Transmission Date: 20201103
  Serious: Yes (Hospitalization, Other)
  Sender: FDA-Public Use
  Company Number: US-MYLANLABS-2020M1081680

PATIENT
  Age: 27 Year
  Sex: Female
  Weight: 83.9 kg

DRUGS (7)
  1. OLANZAPINE. [Interacting]
     Active Substance: OLANZAPINE
     Dosage: REQUIRED MULTIPLE DOSES OF OLANZAPINE (TOTAL DAILY DOSE LESS THAN OR EQUAL TO 40MG
     Route: 048
  2. OLANZAPINE. [Interacting]
     Active Substance: OLANZAPINE
     Dosage: 25 MILLIGRAM, OLANZAPINE WAS DISCONTINUED GRADUALLY
     Route: 048
  3. LITHIUM. [Interacting]
     Active Substance: LITHIUM
     Indication: MANIA
     Dosage: 300 MILLIGRAM, BID
     Route: 048
  4. OLANZAPINE. [Suspect]
     Active Substance: OLANZAPINE
     Indication: MANIA
     Dosage: UNK UNK, PRN, AS NEEDED (PRO RE NATA DOSES) TOTAL DAILY DOSE ON HOSPITAL DAY 1
     Route: 048
  5. OLANZAPINE. [Interacting]
     Active Substance: OLANZAPINE
     Dosage: THE DOSE WAS TITRATED TO 10MG IN THE MORNING AND 20MG IN THE EVENING BY DAY 9
     Route: 048
  6. LITHIUM. [Interacting]
     Active Substance: LITHIUM
     Dosage: 1500 MILLIGRAM, QD
     Route: 048
  7. LITHIUM. [Interacting]
     Active Substance: LITHIUM
     Dosage: ON DISCHARGE, THE LITHIUM WAS AT A TOTAL DAILY DOSE OF 1350MG
     Route: 048

REACTIONS (8)
  - Drug interaction [Recovering/Resolving]
  - Transaminases increased [Unknown]
  - Pruritus [Unknown]
  - Drug level decreased [Recovering/Resolving]
  - Condition aggravated [Unknown]
  - Erythema [Unknown]
  - Weight increased [Recovering/Resolving]
  - Oedema [Recovered/Resolved]
